FAERS Safety Report 6250618-9 (Version None)
Quarter: 2009Q2

REPORT INFORMATION
  Report Type: 
  Country: None (occurrence: None)
  Receive Date: 20090630
  Receipt Date: 20090629
  Transmission Date: 20091009
  Serious: Yes (Hospitalization)
  Sender: FDA-Public Use
  Company Number: CH-WYE-G03945509

PATIENT
  Age: 30 Year
  Sex: Female

DRUGS (1)
  1. EFFEXOR [Suspect]
     Dosage: UNKNOWN
     Dates: start: 20080101, end: 20090101

REACTIONS (3)
  - LABORATORY TEST ABNORMAL [None]
  - PAIN [None]
  - PANCREATITIS [None]
